FAERS Safety Report 22371140 (Version 1)
Quarter: 2023Q2

REPORT INFORMATION
  Report Type: Other
  Country: RO (occurrence: None)
  Receive Date: 20230526
  Receipt Date: 20230526
  Transmission Date: 20230722
  Serious: Yes (Hospitalization)
  Sender: FDA-Public Use
  Company Number: RO-ROCHE-3354188

PATIENT
  Sex: Female
  Weight: 110 kg

DRUGS (1)
  1. TOCILIZUMAB [Suspect]
     Active Substance: TOCILIZUMAB
     Indication: Polyarthritis
     Route: 058

REACTIONS (4)
  - Concussion [Unknown]
  - Cerebrovascular accident [Unknown]
  - Thrombosis [Recovered/Resolved]
  - Speech disorder [Recovered/Resolved]
